FAERS Safety Report 4783000-1 (Version None)
Quarter: 2005Q3

REPORT INFORMATION
  Report Type: 
  Country: None (occurrence: None)
  Receive Date: 20050927
  Receipt Date: 20050906
  Transmission Date: 20060218
  Serious: Yes (Hospitalization)
  Sender: FDA-Public Use
  Company Number: AE2005-0403

PATIENT
  Age: 13 Year
  Sex: Female
  Weight: 49.8957 kg

DRUGS (2)
  1. MUCINEX DM [Suspect]
     Indication: DRUG ABUSER
     Dosage: MG, ORAL
     Route: 048
     Dates: start: 20050829, end: 20050903
  2. PROZAC [Concomitant]

REACTIONS (4)
  - AGGRESSION [None]
  - DRUG ABUSER [None]
  - DYSARTHRIA [None]
  - MYDRIASIS [None]
